FAERS Safety Report 5763412-X (Version None)
Quarter: 2008Q2

REPORT INFORMATION
  Report Type: 
  Country: None (occurrence: None)
  Receive Date: 20080604
  Receipt Date: 20080604
  Transmission Date: 20081010
  Serious: Yes (Hospitalization)
  Sender: FDA-Public Use
  Company Number: None

PATIENT
  Age: 84 Year
  Sex: Male
  Weight: 58.9676 kg

DRUGS (4)
  1. DIGITEK 0.125MG - BERTEK [Suspect]
     Indication: ARRHYTHMIA
     Dosage: 0.125MG TABLET DAILY ORAL
     Route: 048
     Dates: end: 20080406
  2. DIGITEK 0.125MG - BERTEK [Suspect]
     Indication: CARDIAC FAILURE CONGESTIVE
     Dosage: 0.125MG TABLET DAILY ORAL
     Route: 048
     Dates: end: 20080406
  3. DIGITEK 0.125MG - BERTEK [Suspect]
     Indication: ARRHYTHMIA
     Dosage: 0.125MG TABLET DAILY ORAL
     Route: 048
     Dates: start: 20080426, end: 20080430
  4. DIGITEK 0.125MG - BERTEK [Suspect]
     Indication: CARDIAC FAILURE CONGESTIVE
     Dosage: 0.125MG TABLET DAILY ORAL
     Route: 048
     Dates: start: 20080426, end: 20080430

REACTIONS (5)
  - DECREASED APPETITE [None]
  - DEHYDRATION [None]
  - DIARRHOEA [None]
  - NAUSEA [None]
  - PHARMACEUTICAL PRODUCT COMPLAINT [None]
